FAERS Safety Report 6221853-0 (Version None)
Quarter: 2009Q2

REPORT INFORMATION
  Report Type: 
  Country: None (occurrence: None)
  Receive Date: 20090609
  Receipt Date: 20090601
  Transmission Date: 20091009
  Serious: Yes (Other)
  Sender: FDA-Public Use
  Company Number: CHPA2009US12928

PATIENT
  Age: 41 Year
  Sex: Male
  Weight: 93 kg

DRUGS (4)
  1. BENEFIBER W/WHEAT DEXTRIN (NCH) (WHEAT DEXTRIN) CHEWABLE TABLET [Suspect]
     Indication: NUTRITIONAL SUPPORT
     Dosage: ORAL
     Route: 048
  2. GAS-X-EXTSTR CHEWABLE TABS CHERRY CREME (NCH) (SIMETHICONE) CHEWABLE T [Suspect]
     Indication: FLATULENCE
     Dosage: ORAL
     Route: 048
     Dates: start: 20090601, end: 20090601
  3. DIOCTO (DOCUSATE SODIUM) [Concomitant]
  4. MOTRIN [Concomitant]

REACTIONS (2)
  - ABDOMINAL PAIN UPPER [None]
  - HERNIA REPAIR [None]
